FAERS Safety Report 23018116 (Version 1)
Quarter: 2023Q4

REPORT INFORMATION
  Report Type: Spontaneous
  Country: US (occurrence: US)
  Receive Date: 20231003
  Receipt Date: 20231003
  Transmission Date: 20240110
  Serious: No
  Sender: FDA-Public Use
  Company Number: US-AMGEN-USASP2023174053

PATIENT

DRUGS (3)
  1. AIMOVIG [Suspect]
     Active Substance: ERENUMAB-AOOE
     Indication: Product used for unknown indication
     Dosage: UNK
     Route: 065
  2. QULIPTA [Suspect]
     Active Substance: ATOGEPANT
     Indication: Product used for unknown indication
     Dosage: 60 MILLIGRAM
     Route: 065
  3. QULIPTA [Suspect]
     Active Substance: ATOGEPANT
     Dosage: 30 MILLIGRAM
     Route: 065

REACTIONS (1)
  - Alopecia [Recovering/Resolving]
